FAERS Safety Report 21142824 (Version 1)
Quarter: 2022Q3

REPORT INFORMATION
  Report Type: Spontaneous
  Country: US (occurrence: None)
  Receive Date: 20220728
  Receipt Date: 20220728
  Transmission Date: 20221027
  Serious: Yes (Hospitalization)
  Sender: FDA-Public Use
  Company Number: None

PATIENT
  Age: 85 Year
  Sex: Female

DRUGS (11)
  1. VERZENIO [Suspect]
     Active Substance: ABEMACICLIB
     Dosage: FREQUENCY : DAILY;?
     Route: 048
  2. clonazeoam [Concomitant]
  3. CRESTOR [Concomitant]
     Active Substance: ROSUVASTATIN CALCIUM
  4. DEXAMETHASONE [Concomitant]
     Active Substance: DEXAMETHASONE
  5. ISOSORBIDE MONONITRATE [Concomitant]
     Active Substance: ISOSORBIDE MONONITRATE
  6. LETROZOLE [Concomitant]
     Active Substance: LETROZOLE
  7. LEVOTHYROXINE [Concomitant]
     Active Substance: LEVOTHYROXINE
  8. ONDANSETRON [Concomitant]
     Active Substance: ONDANSETRON
  9. PERCOCET [Concomitant]
     Active Substance: ACETAMINOPHEN\OXYCODONE HYDROCHLORIDE
  10. PANTOPRAZOLE [Concomitant]
     Active Substance: PANTOPRAZOLE
  11. TYLENOL EXTRA STRENGTH [Concomitant]
     Active Substance: ACETAMINOPHEN

REACTIONS (3)
  - Constipation [None]
  - Vomiting [None]
  - Hypokalaemia [None]

NARRATIVE: CASE EVENT DATE: 20220710
